FAERS Safety Report 11544275 (Version 2)
Quarter: 2015Q4

REPORT INFORMATION
  Report Type: Spontaneous
  Country: GB (occurrence: GB)
  Receive Date: 20150924
  Receipt Date: 20151120
  Transmission Date: 20160304
  Serious: Yes (Death, Other)
  Sender: FDA-Public Use
  Company Number: GB-TEVA-594322ACC

PATIENT
  Age: 55 Year
  Sex: Male
  Weight: 63 kg

DRUGS (5)
  1. PRAVASTATIN [Suspect]
     Active Substance: PRAVASTATIN\PRAVASTATIN SODIUM
     Dates: start: 20150819
  2. RAMIPRIL. [Concomitant]
     Active Substance: RAMIPRIL
     Dosage: 10 MILLIGRAM DAILY;
     Dates: start: 20140114
  3. BENDROFLUMETHIAZIDE [Concomitant]
     Active Substance: BENDROFLUMETHIAZIDE
     Dosage: 2.5 MILLIGRAM DAILY;
     Dates: start: 20141022
  4. SLOZEM [Concomitant]
     Active Substance: DILTIAZEM
     Dosage: 120 MILLIGRAM DAILY; DAILY DOSE: 120 MG; EACH MORNING
     Dates: start: 20140114
  5. ATORVASTATIN [Concomitant]
     Active Substance: ATORVASTATIN
     Dosage: 1 DOSAGE FORMS DAILY;
     Dates: start: 20150414, end: 20150819

REACTIONS (5)
  - Dyspnoea [Not Recovered/Not Resolved]
  - Cardiac arrest [Not Recovered/Not Resolved]
  - Hypertensive heart disease [Fatal]
  - Pulseless electrical activity [Not Recovered/Not Resolved]
  - Unresponsive to stimuli [Not Recovered/Not Resolved]
